FAERS Safety Report 25804619 (Version 1)
Quarter: 2025Q3

REPORT INFORMATION
  Report Type: Spontaneous
  Country: GB (occurrence: GB)
  Receive Date: 20250915
  Receipt Date: 20250915
  Transmission Date: 20251020
  Serious: Yes (Hospitalization, Other)
  Sender: ELI LILLY AND COMPANY
  Company Number: None

PATIENT
  Sex: Female

DRUGS (1)
  1. MOUNJARO [Suspect]
     Active Substance: TIRZEPATIDE
     Indication: Weight control
     Dosage: 2.5 MG, WEEKLY (1/W)
     Route: 065
     Dates: start: 20250716, end: 20250801

REACTIONS (4)
  - Intestinal perforation [Recovering/Resolving]
  - Infection [Unknown]
  - Wound [Unknown]
  - Constipation [Unknown]

NARRATIVE: CASE EVENT DATE: 20250801
